FAERS Safety Report 21381483 (Version 1)
Quarter: 2022Q3

REPORT INFORMATION
  Report Type: Spontaneous
  Country: DE (occurrence: DE)
  Receive Date: 20220927
  Receipt Date: 20220927
  Transmission Date: 20221027
  Serious: Yes (Hospitalization)
  Sender: FDA-Public Use
  Company Number: DE-ADRED-08006-01

PATIENT
  Age: 84 Year
  Sex: Female
  Weight: 77 kg

DRUGS (5)
  1. CARBOPLATIN [Suspect]
     Active Substance: CARBOPLATIN
     Indication: Product used for unknown indication
     Dosage: ROA-20045000
     Route: 042
  2. GEMCITABINE [Suspect]
     Active Substance: GEMCITABINE
     Indication: Product used for unknown indication
     Dosage: ROA-20045000
     Route: 042
  3. Jalra 50mg [Concomitant]
     Indication: Product used for unknown indication
     Dosage: 50 MG, 1-0-0-0?ROA-20053000
     Route: 048
  4. DULAGLUTIDE [Concomitant]
     Active Substance: DULAGLUTIDE
     Indication: Product used for unknown indication
     Dosage: 0.75 MG, ?ONCE A WEEK?ROA-20066000
     Route: 058
  5. FENTANYL [Concomitant]
     Active Substance: FENTANYL
     Indication: Product used for unknown indication
     Dosage: 12 ?G/H, CHANGE EVERY THREE DAYS??ROA-20070000
     Route: 062

REACTIONS (9)
  - General physical health deterioration [None]
  - Fatigue [None]
  - Presyncope [None]
  - Diarrhoea [None]
  - Dizziness [None]
  - Constipation [None]
  - Fall [None]
  - Anal incontinence [None]
  - Weight decreased [None]
